FAERS Safety Report 4771163-3 (Version None)
Quarter: 2005Q3

REPORT INFORMATION
  Report Type: 
  Country: None (occurrence: None)
  Receive Date: 20050912
  Receipt Date: 20050613
  Transmission Date: 20060218
  Serious: No
  Sender: FDA-Public Use
  Company Number: 2005-01276

PATIENT
  Age: 73 Year
  Sex: Female

DRUGS (3)
  1. VELCADE [Suspect]
     Indication: MULTIPLE MYELOMA
     Dosage: 2.50 MG , IV BOLUS
     Route: 040
     Dates: start: 20050315, end: 20050531
  2. ZOFRAN [Concomitant]
  3. ARIMIDEX [Concomitant]

REACTIONS (5)
  - BLISTER [None]
  - CHEILITIS [None]
  - ERYTHEMA [None]
  - ERYTHEMA OF EYELID [None]
  - EYELID OEDEMA [None]
